FAERS Safety Report 10757526 (Version 6)
Quarter: 2015Q3

REPORT INFORMATION
  Report Type: Spontaneous
  Country: US (occurrence: US)
  Receive Date: 20150203
  Receipt Date: 20150922
  Transmission Date: 20151125
  Serious: Yes (Hospitalization, Other)
  Sender: FDA-Public Use
  Company Number: US-BAYER-2015-013121

PATIENT
  Age: 26 Year
  Sex: Female
  Weight: 49.98 kg

DRUGS (20)
  1. YAZ [Concomitant]
     Active Substance: DROSPIRENONE\ETHINYL ESTRADIOL
  2. ZANTAC [Concomitant]
     Active Substance: RANITIDINE HYDROCHLORIDE
  3. TRAMADOL. [Concomitant]
     Active Substance: TRAMADOL
  4. AMOXICILLIN. [Concomitant]
     Active Substance: AMOXICILLIN
  5. WELLBUTRIN [Concomitant]
     Active Substance: BUPROPION HYDROCHLORIDE
  6. SUDOGEST [Concomitant]
     Active Substance: PSEUDOEPHEDRINE HYDROCHLORIDE
  7. CODEINE W/GUAIFENESIN [Concomitant]
  8. YASMIN [Concomitant]
     Active Substance: DROSPIRENONE\ETHINYL ESTRADIOL
  9. BENTYL [Concomitant]
     Active Substance: DICYCLOMINE HYDROCHLORIDE
  10. MIRENA [Suspect]
     Active Substance: LEVONORGESTREL
     Indication: CONTRACEPTION
     Dosage: 20 MCG/24HR, CONT
     Route: 015
     Dates: start: 20101030, end: 20141031
  11. LORTAB [Concomitant]
     Active Substance: ACETAMINOPHEN\HYDROCODONE BITARTRATE
  12. FLONASE [Concomitant]
     Active Substance: FLUTICASONE PROPIONATE
  13. CLARITIN [Concomitant]
     Active Substance: LORATADINE
  14. TYLENOL [Concomitant]
     Active Substance: ACETAMINOPHEN
  15. PROTONIX [Concomitant]
     Active Substance: PANTOPRAZOLE SODIUM
  16. CIPRO [Concomitant]
     Active Substance: CIPROFLOXACIN HYDROCHLORIDE
  17. SUDAFED [Concomitant]
     Active Substance: PSEUDOEPHEDRINE HYDROCHLORIDE
  18. PHENYLEPHRINE [Concomitant]
     Active Substance: PHENYLEPHRINE\PHENYLEPHRINE HYDROCHLORIDE
  19. HYDROCODONE [Concomitant]
     Active Substance: HYDROCODONE
  20. SINGULAIR [Concomitant]
     Active Substance: MONTELUKAST SODIUM

REACTIONS (40)
  - Pain [None]
  - Abnormal behaviour [None]
  - Depression [Not Recovered/Not Resolved]
  - Post-traumatic stress disorder [Not Recovered/Not Resolved]
  - Abdominal pain upper [None]
  - Tremor [None]
  - Uterine perforation [None]
  - Overdose [None]
  - Nerve injury [None]
  - Skin discolouration [None]
  - Anxiety [None]
  - Muscle injury [None]
  - Musculoskeletal pain [None]
  - Peripheral swelling [None]
  - Oesophageal spasm [None]
  - Dyspepsia [None]
  - Emotional distress [None]
  - Fatigue [None]
  - Hot flush [None]
  - Muscle injury [None]
  - Loss of consciousness [None]
  - Gastrointestinal injury [None]
  - Chest injury [None]
  - Panic attack [Not Recovered/Not Resolved]
  - Impaired gastric emptying [None]
  - Weight increased [None]
  - Injury [None]
  - Breast pain [None]
  - Eczema [None]
  - Nausea [None]
  - Abdominal pain lower [None]
  - Mood swings [None]
  - Device issue [None]
  - Weight increased [None]
  - Device breakage [None]
  - Wound dehiscence [None]
  - Musculoskeletal chest pain [None]
  - Tachycardia [None]
  - Anxiety [Not Recovered/Not Resolved]
  - Implant site pain [None]

NARRATIVE: CASE EVENT DATE: 201010
